FAERS Safety Report 6210745-9 (Version None)
Quarter: 2009Q2

REPORT INFORMATION
  Report Type: 
  Country: None (occurrence: None)
  Receive Date: 20090528
  Receipt Date: 20090528
  Transmission Date: 20091009
  Serious: Yes (Hospitalization)
  Sender: FDA-Public Use
  Company Number: None

PATIENT
  Sex: Female
  Weight: 95.2554 kg

DRUGS (1)
  1. SPIRIVA [Suspect]
     Indication: ASTHMA
     Dosage: ONE CAPSULE INHALER 1 X DAY INHAL ONCE
     Route: 055
     Dates: start: 20090521, end: 20090521

REACTIONS (2)
  - PAIN IN EXTREMITY [None]
  - SCREAMING [None]
